FAERS Safety Report 15152587 (Version 2)
Quarter: 2018Q4

REPORT INFORMATION
  Report Type: Report from Study
  Country: US (occurrence: US)
  Receive Date: 20180717
  Receipt Date: 20181119
  Transmission Date: 20190204
  Serious: Yes (Other)
  Sender: FDA-Public Use
  Company Number: US-ROCHE-2151863

PATIENT
  Age: 30 Year
  Sex: Female
  Weight: 51.76 kg

DRUGS (4)
  1. OCREVUS [Suspect]
     Active Substance: OCRELIZUMAB
     Indication: MULTIPLE SCLEROSIS
     Dosage: 10/OCT/2018
     Route: 042
     Dates: start: 201801
  2. VERSED [Suspect]
     Active Substance: MIDAZOLAM HYDROCHLORIDE
     Indication: PRODUCT USED FOR UNKNOWN INDICATION
     Route: 065
     Dates: start: 20180601
  3. AMPYRA [Suspect]
     Active Substance: DALFAMPRIDINE
     Indication: GAIT DISTURBANCE
     Dosage: INDICATION: DIFFICULTY WALKING RELATED TO MS
     Route: 048
     Dates: start: 201805, end: 20180605
  4. TRAMADOL. [Suspect]
     Active Substance: TRAMADOL
     Indication: PRODUCT USED FOR UNKNOWN INDICATION
     Route: 065
     Dates: start: 20180601

REACTIONS (21)
  - Confusional state [Recovering/Resolving]
  - Presyncope [Recovered/Resolved]
  - Vomiting [Recovered/Resolved]
  - Dizziness [Recovered/Resolved]
  - Gait disturbance [Not Recovered/Not Resolved]
  - Fatigue [Recovered/Resolved]
  - Pyrexia [Recovering/Resolving]
  - Pruritus [Recovered/Resolved]
  - Panic reaction [Recovering/Resolving]
  - Dizziness [Recovering/Resolving]
  - Flatulence [Recovering/Resolving]
  - Gait disturbance [Unknown]
  - Condition aggravated [Unknown]
  - Asthenia [Recovering/Resolving]
  - Crying [Recovering/Resolving]
  - Nausea [Recovering/Resolving]
  - Headache [Recovering/Resolving]
  - Chest pain [Recovering/Resolving]
  - Eructation [Recovering/Resolving]
  - Gait disturbance [Recovering/Resolving]
  - Rash [Recovered/Resolved]

NARRATIVE: CASE EVENT DATE: 201801
